FAERS Safety Report 7154478-3 (Version None)
Quarter: 2010Q4

REPORT INFORMATION
  Report Type: 
  Country: None (occurrence: None)
  Receive Date: 20101213
  Receipt Date: 20101201
  Transmission Date: 20110411
  Serious: Yes (Hospitalization, Other)
  Sender: FDA-Public Use
  Company Number: US-ELI_LILLY_AND_COMPANY-US201003003234

PATIENT
  Sex: Female

DRUGS (17)
  1. FORTEO [Suspect]
     Indication: OSTEOPOROSIS
     Dosage: 20 UG, DAILY (1/D)
  2. PROZAC [Suspect]
  3. AMBIEN [Concomitant]
  4. ASPIRIN [Concomitant]
  5. CALCIUM [Concomitant]
  6. LASIX [Concomitant]
  7. LYRICA [Concomitant]
  8. METOPROLOL [Concomitant]
  9. POTASSIUM CHLORIDE [Concomitant]
  10. PREVACID [Concomitant]
  11. PROPECIA [Concomitant]
  12. SENNA [Concomitant]
  13. SYNTHROID [Concomitant]
  14. TYLENOL                                 /SCH/ [Concomitant]
     Dosage: UNK, AS NEEDED
  15. VALIUM [Concomitant]
     Dosage: UNK, AS NEEDED
  16. SEROQUEL [Concomitant]
  17. DURAGESIC-100 [Concomitant]
     Route: 062

REACTIONS (11)
  - ACID BASE BALANCE ABNORMAL [None]
  - ACUTE RESPIRATORY FAILURE [None]
  - ANAEMIA MACROCYTIC [None]
  - CLOSTRIDIUM DIFFICILE COLITIS [None]
  - DIZZINESS [None]
  - FEELING HOT [None]
  - HEART RATE INCREASED [None]
  - HYPOKALAEMIA [None]
  - HYPONATRAEMIA [None]
  - MALNUTRITION [None]
  - TREMOR [None]
